FAERS Safety Report 19686798 (Version 1)
Quarter: 2021Q3

REPORT INFORMATION
  Report Type: Spontaneous
  Country: US (occurrence: US)
  Receive Date: 20210811
  Receipt Date: 20210811
  Transmission Date: 20211014
  Serious: No
  Sender: FDA-Public Use
  Company Number: US-MEDEXUS PHARMA, INC.-2021MED00001

PATIENT
  Sex: Female

DRUGS (1)
  1. RASUVO [Suspect]
     Active Substance: METHOTREXATE SODIUM
     Indication: RHEUMATOID ARTHRITIS
     Dosage: 15 MG, 1X/WEEK EVERY SUNDAY, INJECTED ON UPPER THIGH

REACTIONS (4)
  - Product dose omission issue [Not Recovered/Not Resolved]
  - Product distribution issue [Not Recovered/Not Resolved]
  - Pain [Not Recovered/Not Resolved]
  - Performance status decreased [Not Recovered/Not Resolved]

NARRATIVE: CASE EVENT DATE: 202101
